FAERS Safety Report 4370853-4 (Version None)
Quarter: 2004Q2

REPORT INFORMATION
  Report Type: 
  Country: None (occurrence: None)
  Receive Date: 20040601
  Receipt Date: 20040519
  Transmission Date: 20050107
  Serious: Yes (Disabling)
  Sender: FDA-Public Use
  Company Number: DSA_60419_2004

PATIENT
  Age: 69 Year
  Sex: Male

DRUGS (1)
  1. DIHYDERGOT-HEPARIN [Suspect]
     Indication: THROMBOSIS PROPHYLAXIS
     Dosage: 10000 IU BID
     Dates: start: 19820202, end: 19820207

REACTIONS (2)
  - ERGOT POISONING [None]
  - LEG AMPUTATION [None]
